FAERS Safety Report 23948618 (Version 1)
Quarter: 2024Q2

REPORT INFORMATION
  Report Type: Spontaneous
  Country: US (occurrence: US)
  Receive Date: 20240607
  Receipt Date: 20240607
  Transmission Date: 20240716
  Serious: Yes (Death)
  Sender: FDA-Public Use
  Company Number: US-PROCTER+GAMBLE-PH24004725

PATIENT
  Age: 17 Year
  Sex: Male

DRUGS (8)
  1. DIPHENHYDRAMINE HYDROCHLORIDE [Suspect]
     Active Substance: DIPHENHYDRAMINE HYDROCHLORIDE
     Dosage: UNK
     Route: 048
  2. FENTANYL [Suspect]
     Active Substance: FENTANYL\FENTANYL CITRATE
     Dosage: UNK
  3. MORPHINE [Suspect]
     Active Substance: MORPHINE
     Dosage: UNK
  4. NALOXONE [Suspect]
     Active Substance: NALOXONE
     Dosage: UNK
  5. VALERYL FENTANYL [Suspect]
     Active Substance: VALERYL FENTANYL
     Dosage: UNK
  6. FLUALPRAZOLAM [Suspect]
     Active Substance: FLUALPRAZOLAM
     Dosage: UNK
  7. DESPROPIONYLFENTANYL [Suspect]
     Active Substance: DESPROPIONYLFENTANYL
     Dosage: UNK
  8. 6-ACETYLMORPHINE [Suspect]
     Active Substance: 6-ACETYLMORPHINE
     Dosage: UNK

REACTIONS (1)
  - Toxicity to various agents [Fatal]
